FAERS Safety Report 5330068-X (Version None)
Quarter: 2007Q2

REPORT INFORMATION
  Report Type: 
  Country: None (occurrence: None)
  Receive Date: 20070521
  Receipt Date: 20070510
  Transmission Date: 20071010
  Serious: Yes (Death)
  Sender: FDA-Public Use
  Company Number: AT-ROCHE-496913

PATIENT
  Age: 43 Year
  Sex: Male
  Weight: 52 kg

DRUGS (2)
  1. PEGASYS [Suspect]
     Indication: HEPATITIS C
     Route: 058
     Dates: start: 20060901, end: 20070302
  2. COPEGUS [Suspect]
     Indication: HEPATITIS C
     Route: 048
     Dates: start: 20060901, end: 20070305

REACTIONS (2)
  - ACQUIRED IMMUNODEFICIENCY SYNDROME [None]
  - CACHEXIA [None]
